FAERS Safety Report 23280977 (Version 1)
Quarter: 2023Q4

REPORT INFORMATION
  Report Type: Spontaneous
  Country: JP (occurrence: JP)
  Receive Date: 20231211
  Receipt Date: 20231211
  Transmission Date: 20240110
  Serious: Yes (Death, Other)
  Sender: FDA-Public Use
  Company Number: JP-CHUGAI-2023042853AA

PATIENT
  Age: 9 Decade
  Sex: Male

DRUGS (2)
  1. CAPECITABINE [Suspect]
     Active Substance: CAPECITABINE
     Indication: Malignant neoplasm of unknown primary site
     Route: 048
  2. AVASTIN [Suspect]
     Active Substance: BEVACIZUMAB
     Indication: Malignant neoplasm of unknown primary site

REACTIONS (4)
  - Circulatory collapse [Fatal]
  - Aortic thrombosis [Fatal]
  - Muscle haemorrhage [Unknown]
  - Off label use [Unknown]
